FAERS Safety Report 12913817 (Version 1)
Quarter: 2016Q4

REPORT INFORMATION
  Report Type: Spontaneous
  Country: US (occurrence: US)
  Receive Date: 20161105
  Receipt Date: 20161105
  Transmission Date: 20170207
  Serious: No
  Sender: FDA-Public Use
  Company Number: US-AUROBINDO-AUR-APL-2015-11320

PATIENT
  Sex: Male
  Weight: 80.74 kg

DRUGS (1)
  1. METOPROLOL TARTRATE TABLETS USP 25 MG [Suspect]
     Active Substance: METOPROLOL TARTRATE
     Indication: HEART RATE IRREGULAR
     Dosage: 25 MG ONE AND A HALF TABLETS BY 3 TIMES A DAY
     Route: 048

REACTIONS (1)
  - Rash [Recovered/Resolved]
